FAERS Safety Report 20299658 (Version 2)
Quarter: 2022Q3

REPORT INFORMATION
  Report Type: Report from Study
  Country: KR (occurrence: None)
  Receive Date: 20220105
  Receipt Date: 20220913
  Transmission Date: 20221026
  Serious: Yes (Hospitalization)
  Sender: FDA-Public Use
  Company Number: KR-Eisai Medical Research-EC-2021-106110

PATIENT
  Sex: Male
  Weight: 70 kg

DRUGS (7)
  1. LENVIMA [Suspect]
     Active Substance: LENVATINIB
     Indication: Hepatocellular carcinoma
     Route: 048
     Dates: start: 20201028, end: 20201221
  2. PROPRANOLOL HYDROCHLORIDE [Concomitant]
     Active Substance: PROPRANOLOL HYDROCHLORIDE
     Indication: Prophylaxis
     Route: 048
     Dates: start: 20200729
  3. CENTIREX ADVANCE [Concomitant]
     Indication: Prophylaxis
     Route: 048
     Dates: start: 20200729
  4. LANSOPRAZOLE [Concomitant]
     Active Substance: LANSOPRAZOLE
     Indication: Prophylaxis
     Route: 048
     Dates: start: 20200729
  5. TENOFORIN [Concomitant]
     Indication: Hepatitis B
     Route: 048
     Dates: start: 20200729
  6. POLYBUTINE SR [Concomitant]
     Indication: Prophylaxis
     Route: 048
     Dates: start: 20200729
  7. LIVACT GRAN [Concomitant]
     Indication: Prophylaxis
     Dosage: 3 PACKS
     Route: 048
     Dates: start: 20200729

REACTIONS (1)
  - Pyrexia [Recovered/Resolved]

NARRATIVE: CASE EVENT DATE: 20201110
